FAERS Safety Report 6740969-3 (Version None)
Quarter: 2010Q2

REPORT INFORMATION
  Report Type: 
  Country: None (occurrence: None)
  Receive Date: 20100526
  Receipt Date: 20100517
  Transmission Date: 20101027
  Serious: No
  Sender: FDA-Public Use
  Company Number: US-BIOGENIDEC-2010BI016109

PATIENT
  Age: 43 Year
  Sex: Male

DRUGS (4)
  1. AVONEX [Suspect]
     Indication: MULTIPLE SCLEROSIS
     Route: 030
     Dates: start: 20100422, end: 20100429
  2. AVONEX [Suspect]
     Route: 030
     Dates: start: 20100429, end: 20100506
  3. AVONEX [Suspect]
     Route: 030
     Dates: start: 20100506, end: 20100513
  4. AVONEX [Suspect]
     Route: 030
     Dates: start: 20100513

REACTIONS (3)
  - INJECTION SITE PAIN [None]
  - INSOMNIA [None]
  - PAIN [None]
